FAERS Safety Report 7296119 (Version 2)
Quarter: 2014Q3

REPORT INFORMATION
  Report Type: Spontaneous
  Country: HR (occurrence: HR)
  Receive Date: 20100224
  Receipt Date: 20140724
  Transmission Date: 20150326
  Serious: Yes (Hospitalization, Other)
  Sender: FDA-Public Use
  Company Number: US-RANBAXY-2010US-31130

PATIENT
  Sex: Male

DRUGS (7)
  1. MEDAZEPAM [Suspect]
     Active Substance: MEDAZEPAM
     Indication: PRODUCT USED FOR UNKNOWN INDICATION
     Dosage: 25 DF, SINGLE
     Route: 065
  2. BUTAMIRATE [Suspect]
     Active Substance: BUTAMIRATE
     Indication: PRODUCT USED FOR UNKNOWN INDICATION
     Dosage: 15 PILLS OF 5 MG
     Route: 065
  3. DIAZEPAM. [Suspect]
     Active Substance: DIAZEPAM
     Indication: PRODUCT USED FOR UNKNOWN INDICATION
     Dosage: 75 MG, SINGLE
     Route: 065
  4. INSULIN [Suspect]
     Active Substance: INSULIN NOS
     Indication: PRODUCT USED FOR UNKNOWN INDICATION
     Dosage: 400 U, SINGLE
     Route: 058
  5. MEDIGOXIN [Interacting]
     Active Substance: METILDIGOXIN
     Indication: PRODUCT USED FOR UNKNOWN INDICATION
     Dosage: 40 PILLS OF 0.1 MG
     Route: 065
  6. VERAPAMIL TABLETS BP 40MG [Suspect]
     Active Substance: VERAPAMIL HYDROCHLORIDE
     Indication: PRODUCT USED FOR UNKNOWN INDICATION
     Dosage: 20 PILLS OF 40 MG
     Route: 065
  7. HYDROCHLOROTHIAZIDE/TRIAMTERENE [Suspect]
     Active Substance: HYDROCHLOROTHIAZIDE\TRIAMTERENE
     Indication: PRODUCT USED FOR UNKNOWN INDICATION
     Dosage: 30 DF, SINGLE
     Route: 065

REACTIONS (21)
  - Pseudomonas test positive [None]
  - Toxicity to various agents [Unknown]
  - Hypoglycaemic coma [Unknown]
  - Renal failure acute [Unknown]
  - Atrial tachycardia [None]
  - Hypotension [None]
  - Cardioactive drug level increased [None]
  - Urinary tract infection [None]
  - Suicide attempt [Unknown]
  - Arrhythmia [Unknown]
  - Bundle branch block left [None]
  - Flatulence [None]
  - Toxicity to various agents [None]
  - Drug interaction [Unknown]
  - Bradycardia [None]
  - Metabolic acidosis [None]
  - Ventricular extrasystoles [None]
  - Ventricular tachycardia [None]
  - Atrioventricular block complete [None]
  - Accelerated idioventricular rhythm [None]
  - Atrial fibrillation [None]
